FAERS Safety Report 14708036 (Version 1)
Quarter: 2018Q2

REPORT INFORMATION
  Report Type: Spontaneous
  Country: US (occurrence: US)
  Receive Date: 20180403
  Receipt Date: 20180403
  Transmission Date: 20180711
  Serious: No
  Sender: FDA-Public Use
  Company Number: US-PFIZER INC-2018132712

PATIENT
  Age: 6 Year
  Sex: Male

DRUGS (1)
  1. QUILLICHEW ER [Suspect]
     Active Substance: METHYLPHENIDATE HYDROCHLORIDE
     Dosage: 15 MG, 1X/DAY (CHEW HALF TABLET BY MOUTH ONCE A DAY)
     Route: 048

REACTIONS (3)
  - Emotional disorder [Unknown]
  - Drug ineffective [Unknown]
  - Feeling abnormal [Unknown]
